FAERS Safety Report 5425843-7 (Version None)
Quarter: 2007Q3

REPORT INFORMATION
  Report Type: 
  Country: None (occurrence: None)
  Receive Date: 20070823
  Receipt Date: 20070823
  Transmission Date: 20080115
  Serious: Yes (Life-Threatening)
  Sender: FDA-Public Use
  Company Number: None

PATIENT
  Age: 44 Year
  Sex: Female
  Weight: 64 kg

DRUGS (1)
  1. THYMOGLOBULIN [Suspect]
     Indication: TRANSPLANT
     Dosage: 135 MG DAILY IV
     Route: 042
     Dates: start: 20070820, end: 20070820

REACTIONS (5)
  - BLOOD PRESSURE DIASTOLIC DECREASED [None]
  - CHILLS [None]
  - FLUSHING [None]
  - PYREXIA [None]
  - TACHYCARDIA [None]
